FAERS Safety Report 20547489 (Version 1)
Quarter: 2022Q1

REPORT INFORMATION
  Report Type: Spontaneous
  Country: CN (occurrence: CN)
  Receive Date: 20220303
  Receipt Date: 20220303
  Transmission Date: 20220423
  Serious: Yes (Hospitalization)
  Sender: FDA-Public Use
  Company Number: CN-NOVARTISPH-NVSC2022CN050087

PATIENT
  Age: 56 Year
  Sex: Male
  Weight: 63 kg

DRUGS (4)
  1. CARBAMAZEPINE [Suspect]
     Active Substance: CARBAMAZEPINE
     Indication: Facial spasm
     Dosage: 0.2 G, BID
     Route: 048
     Dates: start: 20220204, end: 20220220
  2. METHYLPREDNISOLONE [Concomitant]
     Active Substance: METHYLPREDNISOLONE
     Indication: Product used for unknown indication
     Dosage: 80 MG, Q12H (IVGTT)
     Route: 042
  3. COMPOUND GLYCYRRHIZIN [Concomitant]
     Indication: Product used for unknown indication
     Dosage: 80 MG
     Route: 065
     Dates: start: 20220121
  4. COMPOUND GLYCYRRHIZIN [Concomitant]
     Dosage: 80 MG, QD (IVGTT)
     Route: 042

REACTIONS (2)
  - Rash [Recovering/Resolving]
  - Mouth ulceration [Recovering/Resolving]

NARRATIVE: CASE EVENT DATE: 20220220
